FAERS Safety Report 25726984 (Version 1)
Quarter: 2025Q3

REPORT INFORMATION
  Report Type: Spontaneous
  Country: BR (occurrence: BR)
  Receive Date: 20250826
  Receipt Date: 20250826
  Transmission Date: 20251020
  Serious: Yes (Other)
  Sender: CHEPLAPHARM
  Company Number: BR-CHEPLA-2025010140

PATIENT
  Sex: Female
  Weight: 67 kg

DRUGS (4)
  1. CLONAZEPAM [Suspect]
     Active Substance: CLONAZEPAM
     Indication: Anxiety
     Dosage: 2.5 MG/ML; 10 DROPS PER NIGHT; MAH REF 115240011?DAILY DOSE: 10 DROP
     Route: 048
     Dates: start: 2023
  2. CLONAZEPAM [Suspect]
     Active Substance: CLONAZEPAM
     Indication: Panic attack
     Dosage: 2.5 MG/ML; 10 DROPS PER NIGHT; MAH REF 115240011?DAILY DOSE: 10 DROP
     Route: 048
     Dates: start: 2023
  3. CLONAZEPAM [Suspect]
     Active Substance: CLONAZEPAM
     Indication: Anxiety
  4. CLONAZEPAM [Suspect]
     Active Substance: CLONAZEPAM
     Indication: Panic attack

REACTIONS (3)
  - Drug dependence [Unknown]
  - Hypothyroidism [Unknown]
  - Product availability issue [Unknown]
